FAERS Safety Report 4489860-6 (Version None)
Quarter: 2004Q4

REPORT INFORMATION
  Report Type: 
  Country: None (occurrence: None)
  Receive Date: 20041101
  Receipt Date: 20020719
  Transmission Date: 20050328
  Serious: Yes (Death, Hospitalization, Other)
  Sender: FDA-Public Use
  Company Number: PHEH2002US06541

PATIENT
  Age: 56 Year
  Sex: Male
  Weight: 82 kg

DRUGS (6)
  1. SANDOSTATIN LAR [Suspect]
     Indication: DIABETIC RETINOPATHY
     Dosage: 30 MG, UNK
     Route: 030
     Dates: start: 20000530, end: 20020619
  2. GLUCOPHAGE [Concomitant]
  3. LOTENSIN [Concomitant]
  4. GLYBURIDE [Concomitant]
  5. LOPRESSOR [Concomitant]
  6. FLAGYL [Concomitant]

REACTIONS (15)
  - ACUTE RESPIRATORY DISTRESS SYNDROME [None]
  - BLOOD PRESSURE ABNORMAL [None]
  - BRADYCARDIA [None]
  - CARDIAC ARREST [None]
  - CHOLECYSTECTOMY [None]
  - CHOLECYSTITIS [None]
  - CHOLELITHIASIS [None]
  - DISEASE PROGRESSION [None]
  - HYPOXIA [None]
  - LEUKOCYTOSIS [None]
  - LUNG INFILTRATION [None]
  - PANCREATITIS [None]
  - PNEUMONIA STAPHYLOCOCCAL [None]
  - SEPSIS [None]
  - TACHYCARDIA [None]
